FAERS Safety Report 16998100 (Version 3)
Quarter: 2019Q4

REPORT INFORMATION
  Report Type: Spontaneous
  Country: LB (occurrence: LB)
  Receive Date: 20191106
  Receipt Date: 20191203
  Transmission Date: 20200122
  Serious: Yes (Hospitalization, Other)
  Sender: FDA-Public Use
  Company Number: LB-AMGEN-LBNSP2019182880

PATIENT
  Age: 61 Year
  Sex: Male

DRUGS (5)
  1. AMGEVITA [Suspect]
     Active Substance: ADALIMUMAB
     Dosage: 40 MILLIGRAM, Q2WK, WEEK 4
     Route: 058
     Dates: start: 2019, end: 20190922
  2. PREDNISONE. [Concomitant]
     Active Substance: PREDNISONE
  3. AMGEVITA [Suspect]
     Active Substance: ADALIMUMAB
     Indication: COLITIS ULCERATIVE
     Dosage: 160 MILLIGRAM, WEEK 0
     Route: 058
     Dates: start: 20190809, end: 20190809
  4. IMURAN [Concomitant]
     Active Substance: AZATHIOPRINE
  5. AMGEVITA [Suspect]
     Active Substance: ADALIMUMAB
     Dosage: 160 MILLIGRAM, WEEK 2
     Route: 058
     Dates: start: 2019, end: 2019

REACTIONS (3)
  - Cholestasis [Recovered/Resolved]
  - Pneumonia [Recovered/Resolved]
  - Sepsis [Recovered/Resolved]

NARRATIVE: CASE EVENT DATE: 20190919
